FAERS Safety Report 5007799-4 (Version None)
Quarter: 2006Q2

REPORT INFORMATION
  Report Type: 
  Country: None (occurrence: None)
  Receive Date: 20060522
  Receipt Date: 20060512
  Transmission Date: 20061013
  Serious: Yes (Death, Hospitalization)
  Sender: FDA-Public Use
  Company Number: NO-GLAXOSMITHKLINE-B0424201A

PATIENT
  Age: 91 Year
  Sex: Female

DRUGS (7)
  1. LANOXIN [Suspect]
     Indication: ATRIAL FIBRILLATION
     Dosage: .125MG PER DAY
     Dates: end: 20060309
  2. SELO-ZOK [Suspect]
     Dosage: 100MG PER DAY
  3. COZAAR [Concomitant]
     Dosage: 2MG PER DAY
  4. DETRUSITOL [Concomitant]
  5. MAREVAN [Concomitant]
  6. SYMBICORT TURBOHALER [Concomitant]
     Route: 055
  7. CALCIGRAN FORTE [Concomitant]

REACTIONS (3)
  - BRADYCARDIA [None]
  - SYNCOPE [None]
  - THERAPEUTIC AGENT TOXICITY [None]
